FAERS Safety Report 8473240-2 (Version None)
Quarter: 2012Q2

REPORT INFORMATION
  Report Type: 
  Country: None (occurrence: None)
  Receive Date: 20120627
  Receipt Date: 20120620
  Transmission Date: 20120825
  Serious: Yes (Other)
  Sender: FDA-Public Use
  Company Number: AU-MERCK-1206USA03535

PATIENT
  Age: 27 Year
  Sex: Female
  Weight: 60 kg

DRUGS (2)
  1. ATENOLOL [Suspect]
     Route: 065
  2. PRINIVIL [Suspect]
     Route: 048

REACTIONS (2)
  - ABORTION INDUCED [None]
  - MATERNAL EXPOSURE DURING PREGNANCY [None]
